FAERS Safety Report 10412474 (Version 1)
Quarter: 2014Q2

REPORT INFORMATION
  Report Type: Spontaneous
  Country: US (occurrence: None)
  Receive Date: 20140604
  Receipt Date: 20140604
  Transmission Date: 20141212
  Serious: Yes (Hospitalization)
  Sender: FDA-Public Use
  Company Number: 163-POMAL-14023246

PATIENT
  Age: 76 Year
  Sex: Male

DRUGS (7)
  1. POMALYST (POMALIDOMIDE) (2 MILLIGRAM, CAPSULES) [Suspect]
     Indication: PLASMA CELL MYELOMA
     Dosage: 2 MG, 21 IN 28 D, PO
     Route: 048
     Dates: start: 20131007
  2. BIAXIN (CLARITHROMYCIN) [Concomitant]
  3. ASPIRINE (ACETYLSALICYLIC ACID) [Concomitant]
  4. GLYBURIDE (GLIBENCLAMIDE) [Concomitant]
  5. COREG (CARVEDILOL) [Concomitant]
  6. LISINOPRIL [Concomitant]
  7. DECARDON (DEXAMETHASONE) [Concomitant]

REACTIONS (1)
  - Pneumonia [None]
